FAERS Safety Report 8601526-7 (Version None)
Quarter: 2012Q3

REPORT INFORMATION
  Report Type: 
  Country: None (occurrence: None)
  Receive Date: 20120817
  Receipt Date: 20120813
  Transmission Date: 20120928
  Serious: Yes (Death)
  Sender: FDA-Public Use
  Company Number: US-JNJFOC-20120805165

PATIENT

DRUGS (8)
  1. HYDROCORTISONE [Suspect]
     Indication: ACUTE LYMPHOCYTIC LEUKAEMIA
     Dosage: ON DAYS 8, 15 AND 22
     Route: 037
  2. BORTEZOMIB [Suspect]
     Indication: ACUTE LYMPHOCYTIC LEUKAEMIA
     Dosage: ON DAYS 1, 4, 8 AND 11
     Route: 042
  3. VINCRISTINE [Suspect]
     Indication: ACUTE LYMPHOCYTIC LEUKAEMIA
     Dosage: BY PUSH DAY 1, 8, 15 AND 22
     Route: 042
  4. ASPARAGINASE [Suspect]
     Indication: ACUTE LYMPHOCYTIC LEUKAEMIA
     Dosage: (PEGYLATED) 2500 UNITS/ M2/ DOSE AS 4 WEEKLY DOSES
     Route: 030
  5. DOXORUBICIN HYDROCHLORIDE [Suspect]
     Indication: ACUTE LYMPHOCYTIC LEUKAEMIA
     Dosage: OVER 15-30 MINUTES ON DAY 1
     Route: 042
  6. METHOTREXATE [Suspect]
     Indication: ACUTE LYMPHOCYTIC LEUKAEMIA
     Dosage: ON DAY 15 AND TRIPLE THERAPY ON DAYS 8, 15 AND 22
     Route: 037
  7. DEXAMETHASONE [Suspect]
     Indication: ACUTE LYMPHOCYTIC LEUKAEMIA
     Dosage: DIVIDED INTO 2 DOSES FOR 14 CONSECUTIVE DAYS
     Route: 048
  8. CYTARABINE [Suspect]
     Indication: ACUTE LYMPHOCYTIC LEUKAEMIA
     Dosage: ON DAY 1 AND AS CNS INVOLVEMENT ON DAYS 8, 15 AND 22
     Route: 037

REACTIONS (4)
  - HYPOXIA [None]
  - OFF LABEL USE [None]
  - PLEURAL EFFUSION [None]
  - BACTERIAL SEPSIS [None]
